FAERS Safety Report 10273357 (Version 2)
Quarter: 2014Q3

REPORT INFORMATION
  Report Type: Spontaneous
  Country: IR (occurrence: IR)
  Receive Date: 20140702
  Receipt Date: 20140801
  Transmission Date: 20150326
  Serious: Yes (Hospitalization)
  Sender: FDA-Public Use
  Company Number: IR-JNJFOC-20140620013

PATIENT

DRUGS (1)
  1. TRAMADOL HYDROCHLORIDE. [Suspect]
     Active Substance: TRAMADOL HYDROCHLORIDE
     Indication: PRODUCT USED FOR UNKNOWN INDICATION
     Route: 065

REACTIONS (5)
  - Loss of consciousness [Unknown]
  - Suicide attempt [Unknown]
  - Poisoning [Unknown]
  - Adverse event [Unknown]
  - Substance abuse [Unknown]
